FAERS Safety Report 7638742-7 (Version None)
Quarter: 2011Q3

REPORT INFORMATION
  Report Type: 
  Country: None (occurrence: None)
  Receive Date: 20110727
  Receipt Date: 20110719
  Transmission Date: 20111222
  Serious: Yes (Other)
  Sender: FDA-Public Use
  Company Number: FI-ROCHE-728539

PATIENT
  Sex: Male
  Weight: 79 kg

DRUGS (3)
  1. ACTEMRA [Suspect]
     Route: 042
     Dates: start: 20110401, end: 20110601
  2. ACTEMRA [Suspect]
     Indication: RHEUMATOID ARTHRITIS
     Dosage: DOSE: 632 MG, DATE OF LAST DOSE PRIOR TO SAE: 27 AUGUST 2010, DRUG WITHHELD
     Route: 042
     Dates: start: 20100728, end: 20100827
  3. PREDNISOLONE [Concomitant]
     Indication: RHEUMATOID ARTHRITIS

REACTIONS (3)
  - SKIN ULCER [None]
  - FLUID RETENTION [None]
  - OEDEMA PERIPHERAL [None]
